FAERS Safety Report 7290472-X (Version None)
Quarter: 2011Q1

REPORT INFORMATION
  Report Type: 
  Country: None (occurrence: None)
  Receive Date: 20110131
  Receipt Date: 20101231
  Transmission Date: 20110831
  Serious: Yes (Death)
  Sender: FDA-Public Use
  Company Number: AUR-APL-2011-00170

PATIENT
  Age: 65 Year
  Sex: Male

DRUGS (8)
  1. VENLAFAXINE HCL [Suspect]
     Dosage: ORAL
     Route: 048
  2. LAMOTRIGINE [Suspect]
  3. PROPRANOLOL [Suspect]
  4. DOXEPIN [Suspect]
     Dosage: ORAL
     Route: 048
  5. MODAFINIL [Suspect]
  6. ACETAMINOPHEN [Suspect]
  7. ALPRAZOLAM [Suspect]
     Dosage: ORAL
     Route: 048
  8. WARFARIN SODIUM [Suspect]

REACTIONS (5)
  - CARDIAC ARREST [None]
  - RESPIRATORY ARREST [None]
  - COMPLETED SUICIDE [None]
  - TOXICITY TO VARIOUS AGENTS [None]
  - INTENTIONAL DRUG MISUSE [None]
